FAERS Safety Report 23852919 (Version 1)
Quarter: 2024Q2

REPORT INFORMATION
  Report Type: Spontaneous
  Country: PL (occurrence: None)
  Receive Date: 20240514
  Receipt Date: 20240514
  Transmission Date: 20240715
  Serious: Yes (Death, Life-Threatening, Hospitalization, Other)
  Sender: FDA-Public Use
  Company Number: PL-THERAKIND-2024000127

PATIENT
  Age: 49 Year
  Sex: Male

DRUGS (1)
  1. METHOTREXATE [Suspect]
     Active Substance: METHOTREXATE
     Indication: Product used for unknown indication

REACTIONS (11)
  - Accidental overdose [Fatal]
  - Product dispensing error [Fatal]
  - Product prescribing issue [Fatal]
  - Wrong product administered [Fatal]
  - Purpura [Fatal]
  - Diarrhoea [Fatal]
  - Pancytopenia [Fatal]
  - Toxicity to various agents [Fatal]
  - Epistaxis [Unknown]
  - Pyrexia [Unknown]
  - Dyspnoea [Unknown]
